FAERS Safety Report 26191280 (Version 1)
Quarter: 2025Q4

REPORT INFORMATION
  Report Type: Spontaneous
  Country: JP (occurrence: JP)
  Receive Date: 20251223
  Receipt Date: 20251223
  Transmission Date: 20260119
  Serious: Yes (Other)
  Sender: ASTELLAS
  Company Number: JP-ASTELLAS-2025-AER-056359

PATIENT
  Age: 73 Year
  Sex: Male

DRUGS (7)
  1. CRESEMBA [Suspect]
     Active Substance: ISAVUCONAZONIUM SULFATE
     Indication: Bronchopulmonary aspergillosis
     Dosage: 200 MILLIGRAM, QD
     Route: 048
     Dates: start: 20250328, end: 20250501
  2. ITRACONAZOLE [Suspect]
     Active Substance: ITRACONAZOLE
     Indication: Product used for unknown indication
     Route: 065
  3. ERYTHROCIN [Concomitant]
     Active Substance: ERYTHROMYCIN LACTOBIONATE
     Indication: Product used for unknown indication
     Route: 065
     Dates: start: 20240202
  4. AMBROXOL HYDROCHLORIDE OD [Concomitant]
     Indication: Product used for unknown indication
     Route: 065
     Dates: start: 20220513
  5. MONTELUKAST OD [Concomitant]
     Indication: Chronic obstructive pulmonary disease
     Route: 065
     Dates: start: 20250403
  6. VIBEGRON [Concomitant]
     Active Substance: VIBEGRON
     Indication: Hypertonic bladder
     Route: 065
  7. OLODATEROL HYDROCHLORIDE\TIOTROPIUM BROMIDE MONOHYDRATE [Concomitant]
     Active Substance: OLODATEROL HYDROCHLORIDE\TIOTROPIUM BROMIDE MONOHYDRATE
     Indication: Chronic obstructive pulmonary disease
     Route: 065

REACTIONS (3)
  - Arrhythmia [Recovered/Resolved]
  - Brain natriuretic peptide increased [Recovered/Resolved]
  - Hot flush [Recovered/Resolved]

NARRATIVE: CASE EVENT DATE: 20250501
